FAERS Safety Report 17024406 (Version 1)
Quarter: 2019Q4

REPORT INFORMATION
  Report Type: Spontaneous
  Country: GB (occurrence: GB)
  Receive Date: 20191113
  Receipt Date: 20191113
  Transmission Date: 20200122
  Serious: Yes (Life-Threatening)
  Sender: FDA-Public Use
  Company Number: GB-TEVA-2019-GB-1136340

PATIENT
  Age: 30 Year
  Sex: Female

DRUGS (6)
  1. FOLIC ACID. [Concomitant]
     Active Substance: FOLIC ACID
  2. PRILOCAINE [Concomitant]
     Active Substance: PRILOCAINE
  3. GLATIRAMER ACETATE. [Suspect]
     Active Substance: GLATIRAMER ACETATE
     Indication: MULTIPLE SCLEROSIS
     Dosage: 40 MG
     Route: 058
     Dates: start: 20180319, end: 20191006
  4. LIDOCAINE. [Concomitant]
     Active Substance: LIDOCAINE
  5. RANITIDINE. [Concomitant]
     Active Substance: RANITIDINE
  6. FERROUS FUMARATE [Concomitant]
     Active Substance: FERROUS FUMARATE

REACTIONS (1)
  - Anaphylactic reaction [Recovered/Resolved]

NARRATIVE: CASE EVENT DATE: 20191006
